FAERS Safety Report 8766239 (Version 2)
Quarter: 2013Q1

REPORT INFORMATION
  Report Type: Report from Study
  Country: JP (occurrence: JP)
  Receive Date: 20120904
  Receipt Date: 20130213
  Transmission Date: 20140127
  Serious: Yes (Other)
  Sender: FDA-Public Use
  Company Number: JP-009507513-2012SP010172

PATIENT
  Age: 45 Year
  Sex: Male
  Weight: 87 kg

DRUGS (18)
  1. PEGINTRON [Suspect]
     Indication: CHRONIC HEPATITIS C
     Dosage: 1.5 ?G/KG, QW
     Route: 058
     Dates: start: 20111220, end: 20111227
  2. PEGINTRON [Suspect]
     Dosage: 1.2 ?G/KG, QW
     Route: 058
     Dates: start: 20120501
  3. REBETOL [Suspect]
     Indication: CHRONIC HEPATITIS C
     Dosage: 1000 MG, QD
     Route: 048
     Dates: start: 20111220, end: 20120104
  4. REBETOL [Suspect]
     Dosage: 800 MG, QD
     Route: 048
     Dates: start: 20120501
  5. TELAVIC [Suspect]
     Indication: CHRONIC HEPATITIS C
     Dosage: 2250 MG, QD
     Route: 048
     Dates: start: 20111220, end: 20111222
  6. TELAVIC [Suspect]
     Dosage: 1500 MG, QD
     Route: 048
     Dates: start: 20111227, end: 20111229
  7. TELAVIC [Suspect]
     Dosage: 1500 MG, UNK
     Route: 048
     Dates: start: 20120501, end: 20120506
  8. TELAVIC [Suspect]
     Dosage: 1000 MG, UNK
     Route: 048
     Dates: start: 20120507, end: 20120520
  9. TELAVIC [Suspect]
     Dosage: 1500 MG, UNK
     Route: 048
     Dates: start: 20120521
  10. MICARDIS [Concomitant]
     Indication: HYPERTENSION
     Dosage: 40 MG, QD
     Route: 048
  11. SALOBEL [Concomitant]
     Indication: HYPERURICAEMIA
     Dosage: 100 MG, QD
     Route: 048
  12. PARIET [Concomitant]
     Indication: GASTRITIS
     Dosage: 10 MG, QD
     Route: 048
  13. PARIET [Concomitant]
     Indication: GASTROOESOPHAGEAL REFLUX DISEASE
  14. LIVALO [Concomitant]
     Indication: HYPERLIPIDAEMIA
     Dosage: 2 MG, QD
     Route: 048
  15. LIVALO [Concomitant]
     Dosage: 1 MG, UNK
     Route: 048
  16. EPADEL [Concomitant]
     Indication: HYPERLIPIDAEMIA
     Dosage: 1800 MG, QD
     Route: 048
  17. CLARITIN REDITABS [Concomitant]
     Indication: PROPHYLAXIS
     Dosage: 10 MG, QD
     Route: 048
  18. FEROTYM [Concomitant]
     Indication: IRON DEFICIENCY ANAEMIA
     Dosage: 100 MG, QD
     Route: 048

REACTIONS (3)
  - Renal impairment [Recovering/Resolving]
  - Renal disorder [Recovered/Resolved]
  - Hyperuricaemia [Not Recovered/Not Resolved]
